FAERS Safety Report 4438748-5 (Version None)
Quarter: 2004Q3

REPORT INFORMATION
  Report Type: 
  Country: None (occurrence: None)
  Receive Date: 20040830
  Receipt Date: 20040817
  Transmission Date: 20050211
  Serious: Yes (Hospitalization)
  Sender: FDA-Public Use
  Company Number: 040818-0000410

PATIENT
  Age: 50 Year
  Sex: Female
  Weight: 65.7716 kg

DRUGS (12)
  1. PANHEMATIN [Suspect]
     Indication: PORPHYRIA ACUTE
     Dosage: 150MG;BID;IV
     Route: 042
  2. PANHEMATIN [Suspect]
  3. DEXTROSE [Concomitant]
  4. HEPARIN [Concomitant]
  5. DARVOCET-N 100 [Concomitant]
  6. KYTRIL [Concomitant]
  7. TENEX [Concomitant]
  8. FOSAMAX [Concomitant]
  9. WARFARIN SODIUM [Concomitant]
  10. CALCIUM CARBONATE [Concomitant]
  11. SENOKOT [Concomitant]
  12. COLACE [Concomitant]

REACTIONS (2)
  - BACTERIAL SEPSIS [None]
  - STENOTROPHOMONAS INFECTION [None]
